FAERS Safety Report 9410875 (Version 2)
Quarter: 2013Q3

REPORT INFORMATION
  Report Type: Report from Study
  Country: JP (occurrence: JP)
  Receive Date: 20130719
  Receipt Date: 20130812
  Transmission Date: 20140515
  Serious: Yes (Death)
  Sender: FDA-Public Use
  Company Number: JP-009507513-1307JPN010986

PATIENT
  Age: 86 Year
  Sex: Male

DRUGS (5)
  1. CANCIDAS FOR INTRAVENOUS DRIP INFUSION 70MG [Suspect]
     Indication: ASPERGILLOMA
     Dosage: INTRAVENOUS DRIP
     Route: 042
     Dates: start: 20130709, end: 20130709
  2. CANCIDAS FOR INTRAVENOUS DRIP INFUSION 50MG [Suspect]
     Indication: ASPERGILLOMA
     Dosage: 50 MG, QD, IV DRIP
     Route: 042
     Dates: start: 20130710, end: 20130710
  3. CEFTRIAXONE SODIUM [Concomitant]
     Indication: PNEUMONIA BACTERIAL
     Dosage: 2 G, QD
     Route: 042
     Dates: start: 20130704, end: 20130710
  4. SOLACET D [Concomitant]
     Indication: FLUID REPLACEMENT
     Dosage: 500 ML, QD, IV DRIP
     Route: 042
     Dates: start: 20130704, end: 20130711
  5. BFLUID [Concomitant]
     Indication: NUTRITIONAL SUPPLEMENTATION
     Dosage: 500 ML, BID, IV DRIP
     Route: 042
     Dates: start: 20130704, end: 20130710

REACTIONS (2)
  - Pneumonia bacterial [Fatal]
  - Drug ineffective [Unknown]
